FAERS Safety Report 6566564-7 (Version None)
Quarter: 2010Q1

REPORT INFORMATION
  Report Type: 
  Country: None (occurrence: None)
  Receive Date: 20100202
  Receipt Date: 20100121
  Transmission Date: 20100710
  Serious: Yes (Hospitalization, Other)
  Sender: FDA-Public Use
  Company Number: BE-PFIZER INC-2010003404

PATIENT
  Age: 65 Year
  Sex: Male
  Weight: 78 kg

DRUGS (3)
  1. SUTENT [Suspect]
     Indication: RENAL CANCER
     Dosage: 50 MG, UNK
     Route: 048
     Dates: start: 20080809, end: 20090414
  2. ISOTEN [Concomitant]
     Indication: HYPERTENSION
     Dosage: 7.5 MG, 1X/DAY
  3. ASAFLOW [Concomitant]
     Dosage: 100 MG, 1X/DAY
     Route: 048

REACTIONS (6)
  - DIARRHOEA [None]
  - DYSGEUSIA [None]
  - GOUT [None]
  - HYPERTENSION [None]
  - PLEURAL EFFUSION [None]
  - RASH ERYTHEMATOUS [None]
